FAERS Safety Report 6508819-8 (Version None)
Quarter: 2009Q4

REPORT INFORMATION
  Report Type: 
  Country: None (occurrence: None)
  Receive Date: 20091221
  Receipt Date: 20090811
  Transmission Date: 20100525
  Serious: No
  Sender: FDA-Public Use
  Company Number: US-ASTRAZENECA-2009SE07595

PATIENT
  Age: 24749 Day
  Sex: Female
  Weight: 86.2 kg

DRUGS (1)
  1. CRESTOR [Suspect]
     Dosage: 1 DAILY
     Route: 048

REACTIONS (2)
  - HYPOAESTHESIA [None]
  - MUSCULAR WEAKNESS [None]
